FAERS Safety Report 9771078 (Version 2)
Quarter: 2013Q4

REPORT INFORMATION
  Report Type: Report from Study
  Country: FR (occurrence: FR)
  Receive Date: 20131218
  Receipt Date: 20131218
  Transmission Date: 20140711
  Serious: Yes (Death, Other)
  Sender: FDA-Public Use
  Company Number: FR-PFIZER INC-2013351428

PATIENT
  Sex: 0

DRUGS (4)
  1. VANCOMYCIN [Suspect]
     Dosage: UNK
  2. CIPROFLOXACIN HCL [Suspect]
     Dosage: UNK
  3. ESOMEPRAZOLE [Suspect]
     Dosage: UNK
  4. HEPARIN [Suspect]
     Dosage: UNK

REACTIONS (3)
  - Septic shock [Fatal]
  - Infection [Fatal]
  - Linear IgA disease [Not Recovered/Not Resolved]
